FAERS Safety Report 9376082 (Version 1)
Quarter: 2013Q2

REPORT INFORMATION
  Report Type: Spontaneous
  Country: US (occurrence: None)
  Receive Date: 20130628
  Receipt Date: 20130628
  Transmission Date: 20140414
  Serious: Yes (Disabling)
  Sender: FDA-Public Use
  Company Number: None

PATIENT
  Age: 77 Year
  Sex: Female

DRUGS (1)
  1. EXJADE [Suspect]
     Indication: CHELATION THERAPY
     Dosage: 500 MG BID DISSOLVED ORALLY.
     Route: 048
     Dates: start: 20120521, end: 2013

REACTIONS (2)
  - Fall [None]
  - Asthenia [None]
